FAERS Safety Report 4750186-4 (Version None)
Quarter: 2005Q3

REPORT INFORMATION
  Report Type: 
  Country: None (occurrence: None)
  Receive Date: 20050819
  Receipt Date: 20050815
  Transmission Date: 20060218
  Serious: No
  Sender: FDA-Public Use
  Company Number: B0389679A

PATIENT
  Sex: 0

DRUGS (1)
  1. AMOX. TRIHYD+POT. CLAVULAN. (AMOX. TRIHYD+POT.CLAVULAN.) [Suspect]
     Indication: BRONCHITIS ACUTE
     Dosage: TWICE PER DAY/ ORAL
     Route: 048

REACTIONS (1)
  - DEPRESSION [None]
